FAERS Safety Report 8068143-1 (Version None)
Quarter: 2012Q1

REPORT INFORMATION
  Report Type: 
  Country: None (occurrence: None)
  Receive Date: 20120124
  Receipt Date: 20110923
  Transmission Date: 20120608
  Serious: No
  Sender: FDA-Public Use
  Company Number: US-AMGEN-USASP2011049438

PATIENT
  Age: 88 Year
  Sex: Female

DRUGS (8)
  1. ZANTAC [Concomitant]
  2. LIPITOR [Concomitant]
  3. ANTIHYPERTENSIVES [Concomitant]
  4. VITAMIN D [Concomitant]
  5. PROLIA [Suspect]
     Indication: OSTEOPOROSIS POSTMENOPAUSAL
     Dates: start: 20110921
  6. CALCIUM PLUS VITAMIN D [Concomitant]
  7. PRILOSEC [Concomitant]
  8. MULTI-VITAMIN [Concomitant]

REACTIONS (4)
  - BLISTER [None]
  - URTICARIA [None]
  - RASH [None]
  - RASH MACULAR [None]
